APPROVED DRUG PRODUCT: AZITHROMYCIN
Active Ingredient: AZITHROMYCIN
Strength: EQ 500MG BASE
Dosage Form/Route: TABLET;ORAL
Application: A065366 | Product #001
Applicant: EXTROVIS AG
Approved: May 30, 2007 | RLD: No | RS: No | Type: DISCN